FAERS Safety Report 18756634 (Version 4)
Quarter: 2022Q4

REPORT INFORMATION
  Report Type: Report from Study
  Country: US (occurrence: US)
  Receive Date: 20210119
  Receipt Date: 20221222
  Transmission Date: 20230112
  Serious: Yes (Hospitalization, Other)
  Sender: FDA-Public Use
  Company Number: US-ABBVIE-21K-163-3734286-00

PATIENT
  Age: 44 Year
  Sex: Female

DRUGS (2)
  1. RINVOQ [Suspect]
     Active Substance: UPADACITINIB
     Indication: Rheumatoid arthritis
     Route: 048
     Dates: end: 20201212
  2. RINVOQ [Suspect]
     Active Substance: UPADACITINIB
     Indication: Rheumatoid arthritis
     Route: 048
     Dates: start: 202101

REACTIONS (8)
  - Bacterial sepsis [Unknown]
  - Bacterial infection [Unknown]
  - Lip neoplasm [Unknown]
  - Abscess [Recovering/Resolving]
  - Cellulitis [Recovering/Resolving]
  - Hypertension [Not Recovered/Not Resolved]
  - Haemoglobin abnormal [Recovered/Resolved]
  - Blood cholesterol increased [Not Recovered/Not Resolved]

NARRATIVE: CASE EVENT DATE: 20211225
